FAERS Safety Report 4292376-3 (Version None)
Quarter: 2004Q1

REPORT INFORMATION
  Report Type: 
  Country: None (occurrence: None)
  Receive Date: 20040126
  Receipt Date: 20030827
  Transmission Date: 20041129
  Serious: No
  Sender: FDA-Public Use
  Company Number: USA030843067

PATIENT
  Age: 49 Year
  Sex: Female
  Weight: 35 kg

DRUGS (16)
  1. FORTEO [Suspect]
     Indication: OSTEOPOROSIS
     Dosage: 20 UG/DAY
     Dates: start: 20030730
  2. CALCIUM WITH VITAMIN D [Concomitant]
  3. SYNTHROID [Concomitant]
  4. MULTI-VITAMIN [Concomitant]
  5. OMEGA 3 (FISH OIL) [Concomitant]
  6. EXCEDRIN [Concomitant]
  7. WELLBUTRIN [Concomitant]
  8. CLONOPIN (CLONAZEPAM) [Concomitant]
  9. TRAZODONE HCL [Concomitant]
  10. LORAZEPAM [Concomitant]
  11. FOSAMAX [Concomitant]
  12. REGLAN [Concomitant]
  13. MIACALCIN [Concomitant]
  14. FEMHRT [Concomitant]
  15. VITAMIN B-12 [Concomitant]
  16. LEXAPRO [Concomitant]

REACTIONS (4)
  - HEART RATE INCREASED [None]
  - INJECTION SITE HAEMORRHAGE [None]
  - INJECTION SITE PAIN [None]
  - NERVOUSNESS [None]
